FAERS Safety Report 5088204-9 (Version None)
Quarter: 2006Q3

REPORT INFORMATION
  Report Type: 
  Country: None (occurrence: None)
  Receive Date: 20060823
  Receipt Date: 20060823
  Transmission Date: 20061208
  Serious: Yes (Life-Threatening, Hospitalization)
  Sender: FDA-Public Use
  Company Number: None

PATIENT
  Sex: Female
  Weight: 57.1532 kg

DRUGS (2)
  1. REMICADE [Suspect]
     Indication: CROHN'S DISEASE
     Dosage: IV DRIP
     Route: 042
     Dates: start: 20060728
  2. REMICADE [Suspect]
     Indication: CROHN'S DISEASE
     Dosage: IV DRIP
     Route: 042
     Dates: start: 20060811

REACTIONS (10)
  - ARTHRALGIA [None]
  - BACK PAIN [None]
  - CONVULSION [None]
  - DYSPEPSIA [None]
  - DYSPNOEA [None]
  - MOVEMENT DISORDER [None]
  - NECK PAIN [None]
  - PAIN [None]
  - PHARYNGOLARYNGEAL PAIN [None]
  - SYNOVITIS [None]
